FAERS Safety Report 24046350 (Version 1)
Quarter: 2024Q3

REPORT INFORMATION
  Report Type: Spontaneous
  Country: US (occurrence: None)
  Receive Date: 20240703
  Receipt Date: 20240703
  Transmission Date: 20241017
  Serious: Yes (Hospitalization, Other)
  Sender: Public
  Company Number: None

PATIENT
  Age: 29 Year
  Sex: Female

DRUGS (1)
  1. HUMIRA [Suspect]
     Active Substance: ADALIMUMAB
     Indication: Crohn^s disease
     Dosage: OTHER QUANTITY : 160MG,80MG,40 MG;?OTHER FREQUENCY : EVERY 2 WEEKS;?

REACTIONS (5)
  - Dizziness [None]
  - Tremor [None]
  - Loss of consciousness [None]
  - Heart rate increased [None]
  - Feeling abnormal [None]
